FAERS Safety Report 4322497-8 (Version None)
Quarter: 2004Q1

REPORT INFORMATION
  Report Type: 
  Country: None (occurrence: None)
  Receive Date: 20040323
  Receipt Date: 20040323
  Transmission Date: 20041129
  Serious: Yes (Life-Threatening)
  Sender: FDA-Public Use
  Company Number: None

PATIENT
  Sex: Male
  Weight: 83.9154 kg

DRUGS (1)
  1. ZOLOFT [Suspect]

REACTIONS (4)
  - AGGRESSION [None]
  - AGITATION [None]
  - IRRITABILITY [None]
  - SUICIDE ATTEMPT [None]
